FAERS Safety Report 4897835-8 (Version None)
Quarter: 2006Q1

REPORT INFORMATION
  Report Type: 
  Country: None (occurrence: None)
  Receive Date: 20060201
  Receipt Date: 20060129
  Transmission Date: 20060701
  Serious: Yes (Other)
  Sender: FDA-Public Use
  Company Number: US-GLAXOSMITHKLINE-A0591373A

PATIENT
  Sex: Male

DRUGS (1)
  1. ABACAVIR [Suspect]
     Indication: AUTOIMMUNE DISORDER
     Route: 048

REACTIONS (3)
  - HYPOAESTHESIA [None]
  - RENAL FAILURE [None]
  - T-LYMPHOCYTE COUNT DECREASED [None]
